FAERS Safety Report 4332750-X (Version None)
Quarter: 2004Q1

REPORT INFORMATION
  Report Type: 
  Country: None (occurrence: None)
  Receive Date: 20040330
  Receipt Date: 20040315
  Transmission Date: 20041129
  Serious: Yes (Hospitalization)
  Sender: FDA-Public Use
  Company Number: F01200400528

PATIENT
  Age: 56 Year
  Sex: Male

DRUGS (2)
  1. (OXALIPLATIN) - SOLUTION- 130 MG/M2 [Suspect]
     Indication: COLON CANCER
     Dosage: 130 MG/M2, INTRAVENOUS NOS
     Route: 042
     Dates: start: 20040225, end: 20040225
  2. CAPECITABINE - TABLET - 1000 MG/M2 [Suspect]
     Dosage: ORAL
     Route: 048
     Dates: start: 20040225, end: 20040224

REACTIONS (1)
  - INFERIOR VENA CAVAL OCCLUSION [None]
